FAERS Safety Report 6291414-6 (Version None)
Quarter: 2009Q3

REPORT INFORMATION
  Report Type: 
  Country: None (occurrence: None)
  Receive Date: 20090729
  Receipt Date: 20090729
  Transmission Date: 20100115
  Serious: Yes (Disabling)
  Sender: FDA-Public Use
  Company Number: None

PATIENT
  Sex: Female
  Weight: 53.978 kg

DRUGS (1)
  1. REGLAN [Suspect]
     Indication: REFLUX OESOPHAGITIS
     Dosage: 5 MG 4 TIMES DAILY PO
     Route: 048
     Dates: start: 20041001, end: 20090101

REACTIONS (3)
  - DEPRESSION [None]
  - DIZZINESS [None]
  - TARDIVE DYSKINESIA [None]
